FAERS Safety Report 8192251-8 (Version None)
Quarter: 2012Q1

REPORT INFORMATION
  Report Type: 
  Country: None (occurrence: None)
  Receive Date: 20120307
  Receipt Date: 20120302
  Transmission Date: 20120608
  Serious: Yes (Life-Threatening)
  Sender: FDA-Public Use
  Company Number: US-MERCK-1203USA00225

PATIENT
  Age: 55 Year
  Sex: Female
  Weight: 96 kg

DRUGS (7)
  1. METOPROLOL [Concomitant]
     Indication: HYPERTENSION
     Route: 065
  2. LANTUS [Concomitant]
     Indication: DIABETES MELLITUS
     Route: 065
  3. HUMALOG [Concomitant]
     Route: 065
  4. ISOSORBIDE [Concomitant]
     Route: 065
  5. ARTHROTEC [Suspect]
     Indication: ARTHRITIS
     Route: 065
     Dates: start: 20030101
  6. MEVACOR [Suspect]
     Route: 048
  7. NORVASC [Suspect]
     Indication: HYPERTENSION
     Route: 065
     Dates: start: 20020101

REACTIONS (2)
  - MYOCARDIAL INFARCTION [None]
  - ABDOMINAL PAIN UPPER [None]
